FAERS Safety Report 9263312 (Version 1)
Quarter: 2013Q2

REPORT INFORMATION
  Report Type: Spontaneous
  Country: US (occurrence: US)
  Receive Date: 20130430
  Receipt Date: 20130430
  Transmission Date: 20140414
  Serious: No
  Sender: FDA-Public Use
  Company Number: US-ABBOTT-12P-163-1027895-00

PATIENT
  Age: 55 Year
  Sex: Female
  Weight: 63.56 kg

DRUGS (1)
  1. CREON 24 [Suspect]
     Indication: OVERGROWTH BACTERIAL
     Dosage: 2 CAPSULES WITH EACH MEAL
     Dates: start: 20121227

REACTIONS (2)
  - Burning sensation [Recovering/Resolving]
  - Off label use [Unknown]
